FAERS Safety Report 6982664-1 (Version None)
Quarter: 2010Q3

REPORT INFORMATION
  Report Type: 
  Country: None (occurrence: None)
  Receive Date: 20100914
  Receipt Date: 20100326
  Transmission Date: 20110219
  Serious: Yes (Other)
  Sender: FDA-Public Use
  Company Number: US-PFIZER INC-2010026672

PATIENT
  Sex: Female
  Weight: 91.61 kg

DRUGS (16)
  1. LYRICA [Suspect]
     Indication: NEUROPATHY PERIPHERAL
     Dosage: 300 MG, 2X/DAY
  2. LYRICA [Suspect]
     Indication: DIABETIC NEUROPATHY
  3. LIPITOR [Concomitant]
     Dosage: UNK
  4. BUMEX [Concomitant]
     Dosage: UNK
  5. CALCITRIOL [Concomitant]
     Dosage: UNK
  6. CYMBALTA [Concomitant]
     Dosage: UNK
  7. ALLOPURINOL [Concomitant]
     Dosage: UNK
  8. COLCHICINE [Concomitant]
     Dosage: UNK
  9. GLIPIZIDE [Concomitant]
     Dosage: UNK
  10. IRON [Concomitant]
     Dosage: UNK
  11. CELL CEPT [Concomitant]
     Dosage: UNK
  12. PREVACID [Concomitant]
     Dosage: UNK
  13. PROGRAF [Concomitant]
     Dosage: UNK
  14. DITROPAN [Concomitant]
     Dosage: UNK
  15. POTASSIUM [Concomitant]
     Dosage: UNK
  16. VITAMIN D [Concomitant]
     Dosage: UNK

REACTIONS (4)
  - DISTURBANCE IN ATTENTION [None]
  - FATIGUE [None]
  - VISUAL IMPAIRMENT [None]
  - WEIGHT INCREASED [None]
